FAERS Safety Report 22195844 (Version 4)
Quarter: 2023Q2

REPORT INFORMATION
  Report Type: Spontaneous
  Country: US (occurrence: US)
  Receive Date: 20230411
  Receipt Date: 20230516
  Transmission Date: 20230722
  Serious: Yes (Hospitalization, Other)
  Sender: FDA-Public Use
  Company Number: US-ASTPRD-AER-2022-016732

PATIENT
  Age: 20 Year
  Sex: Female

DRUGS (3)
  1. PROGRAF [Suspect]
     Active Substance: TACROLIMUS
     Indication: Intestinal transplant
     Dosage: 1.5 MG, ONCE DAILY (1.5 MG TOTAL PER DAY)
     Route: 065
  2. TACROLIMUS [Suspect]
     Active Substance: TACROLIMUS
     Indication: Intestinal transplant
     Dosage: UNK UNK, UNKNOWN FREQ.
     Route: 065
  3. TACROLIMUS [Suspect]
     Active Substance: TACROLIMUS
     Dosage: 1 MG, ONCE DAILY (1MG TOTAL PER DAY)
     Route: 065

REACTIONS (5)
  - Transplant rejection [Unknown]
  - Immunosuppressant drug level increased [Recovered/Resolved]
  - Immunosuppressant drug level decreased [Unknown]
  - Renal disorder [Unknown]
  - Off label use [Unknown]
